FAERS Safety Report 23499788 (Version 1)
Quarter: 2024Q1

REPORT INFORMATION
  Report Type: Spontaneous
  Country: US (occurrence: US)
  Receive Date: 20240208
  Receipt Date: 20240208
  Transmission Date: 20240409
  Serious: Yes (Other)
  Sender: FDA-Public Use
  Company Number: US-STRIDES ARCOLAB LIMITED-2024SP001315

PATIENT
  Age: 4 Decade
  Sex: Female

DRUGS (2)
  1. CALCITRIOL [Suspect]
     Active Substance: CALCITRIOL
     Indication: Hypoparathyroidism
     Dosage: UNK (BASELINE)
     Route: 065
  2. CALCITRIOL [Suspect]
     Active Substance: CALCITRIOL
     Dosage: UNK (REQUIREMENT DECREASED BY 66%)
     Route: 065

REACTIONS (2)
  - Premature delivery [Unknown]
  - Maternal exposure during pregnancy [Unknown]
